FAERS Safety Report 7635630-7 (Version None)
Quarter: 2011Q3

REPORT INFORMATION
  Report Type: 
  Country: None (occurrence: None)
  Receive Date: 20110726
  Receipt Date: 20110718
  Transmission Date: 20111222
  Serious: No
  Sender: FDA-Public Use
  Company Number: PHHY2011US51249

PATIENT
  Sex: Female
  Weight: 102.4 kg

DRUGS (3)
  1. CETIRIZINE HCL [Concomitant]
     Indication: HYPERSENSITIVITY
     Route: 048
     Dates: start: 20110615, end: 20110617
  2. SYNTHROID [Concomitant]
     Indication: HYPOTHYROIDISM
     Dosage: 150 UG, UNK
  3. GENTEAL MODERATE LUBRICANT EYE DROPS [Suspect]
     Indication: DRY EYE
     Dosage: UNK UKN, QID
     Route: 047
     Dates: start: 20110615

REACTIONS (2)
  - BLOOD PRESSURE INCREASED [None]
  - PHOTOPHOBIA [None]
